FAERS Safety Report 12748647 (Version 2)
Quarter: 2017Q3

REPORT INFORMATION
  Report Type: Spontaneous
  Country: US (occurrence: US)
  Receive Date: 20160915
  Receipt Date: 20170914
  Transmission Date: 20171127
  Serious: No
  Sender: FDA-Public Use
  Company Number: US-ASTELLAS-2016US009397

PATIENT
  Age: 64 Year
  Sex: Male

DRUGS (2)
  1. XTANDI [Suspect]
     Active Substance: ENZALUTAMIDE
     Indication: PROSTATE CANCER
     Route: 048
     Dates: start: 20160211, end: 201607
  2. XTANDI [Suspect]
     Active Substance: ENZALUTAMIDE
     Route: 048
     Dates: start: 201607

REACTIONS (10)
  - Dizziness [Unknown]
  - Vertigo [Unknown]
  - Mass [Not Recovered/Not Resolved]
  - Nipple pain [Unknown]
  - Petechiae [Not Recovered/Not Resolved]
  - Abdominal pain [Recovering/Resolving]
  - Nausea [Recovering/Resolving]
  - Dyspnoea [Not Recovered/Not Resolved]
  - Sleep disorder [Unknown]
  - Epistaxis [Not Recovered/Not Resolved]

NARRATIVE: CASE EVENT DATE: 201605
